FAERS Safety Report 10562707 (Version 1)
Quarter: 2014Q4

REPORT INFORMATION
  Report Type: Spontaneous
  Country: BR (occurrence: BR)
  Receive Date: 20141104
  Receipt Date: 20141104
  Transmission Date: 20150529
  Serious: Yes (Death)
  Sender: FDA-Public Use
  Company Number: BR-DSJP-DSU-2014-127601

PATIENT

DRUGS (1)
  1. OLMETEC ANLO [Suspect]
     Active Substance: AMLODIPINE BESYLATE\OLMESARTAN MEDOXOMIL
     Indication: PRODUCT USED FOR UNKNOWN INDICATION
     Dosage: 5/20 MG, UNK
     Route: 048

REACTIONS (1)
  - Vascular rupture [Fatal]

NARRATIVE: CASE EVENT DATE: 20130707
